FAERS Safety Report 17846863 (Version 1)
Quarter: 2020Q2

REPORT INFORMATION
  Report Type: Spontaneous
  Country: FR (occurrence: FR)
  Receive Date: 20200601
  Receipt Date: 20200601
  Transmission Date: 20200714
  Serious: Yes (Other)
  Sender: FDA-Public Use
  Company Number: FR-TEVA-2020-FR-1242298

PATIENT
  Age: 73 Year
  Sex: Female
  Weight: 75 kg

DRUGS (1)
  1. CITRATE DE TAMOXIFENE [Suspect]
     Active Substance: TAMOXIFEN CITRATE
     Indication: BREAST CANCER RECURRENT
     Dosage: 20 MG
     Route: 048
     Dates: start: 20171205

REACTIONS (1)
  - Endometrial cancer stage I [Recovering/Resolving]

NARRATIVE: CASE EVENT DATE: 202003
